FAERS Safety Report 6877327-7 (Version None)
Quarter: 2010Q3

REPORT INFORMATION
  Report Type: 
  Country: None (occurrence: None)
  Receive Date: 20100727
  Receipt Date: 20090910
  Transmission Date: 20110219
  Serious: No
  Sender: FDA-Public Use
  Company Number: US-ABBOTT-09P-163-0597157-00

PATIENT
  Sex: Female
  Weight: 45.4 kg

DRUGS (4)
  1. SYNTHROID [Suspect]
     Indication: HYPOTHYROIDISM
     Route: 048
     Dates: start: 20030101
  2. SYNTHROID [Suspect]
     Route: 048
     Dates: start: 20090801
  3. ADVAIR DISKUS 100/50 [Concomitant]
     Indication: CHRONIC OBSTRUCTIVE PULMONARY DISEASE
     Dosage: UNKNOWN
  4. FOSAMAX [Concomitant]
     Indication: OSTEOPOROSIS
     Dosage: UNKNOWN

REACTIONS (2)
  - CHEST PAIN [None]
  - DYSPNOEA [None]
